FAERS Safety Report 8959729 (Version 4)
Quarter: 2013Q4

REPORT INFORMATION
  Report Type: Report from Study
  Country: JP (occurrence: JP)
  Receive Date: 20121212
  Receipt Date: 20131114
  Transmission Date: 20140711
  Serious: Yes (Hospitalization)
  Sender: FDA-Public Use
  Company Number: JP-VERTEX PHARMACEUTICALS INC.-2012-025917

PATIENT
  Age: 69 Year
  Sex: Male

DRUGS (9)
  1. VX-950 (TELAPREVIR) [Suspect]
     Indication: CHRONIC HEPATITIS C
     Dosage: 1500 MG, QD
     Route: 048
     Dates: start: 20120907, end: 20121127
  2. REBETOL [Suspect]
     Indication: CHRONIC HEPATITIS C
     Dosage: 600 MG, QD
     Route: 048
     Dates: start: 20120907, end: 20121025
  3. REBETOL [Suspect]
     Dosage: 200 MG, QD
     Route: 048
     Dates: start: 20121026, end: 20121128
  4. REBETOL [Suspect]
     Dosage: UNK
     Route: 048
     Dates: start: 20121203
  5. REBETOL [Suspect]
     Dosage: 400 MG, QD
     Route: 048
     Dates: start: 20121221
  6. PEGINTRON [Suspect]
     Indication: CHRONIC HEPATITIS C
     Dosage: 1.4 ?G/KG, QW
     Route: 058
     Dates: start: 20120907, end: 20121122
  7. ALOSITOL [Concomitant]
     Dosage: 100 MG, QD
     Route: 048
  8. OMEPRAL [Concomitant]
     Dosage: 10 MG, QD
     Route: 048
     Dates: end: 20121018
  9. NEXIUM [Concomitant]
     Dosage: 20 MG, QD
     Route: 048
     Dates: start: 20121019

REACTIONS (1)
  - Pancreatitis acute [Recovered/Resolved]
